FAERS Safety Report 9254019 (Version 1)
Quarter: 2013Q2

REPORT INFORMATION
  Report Type: Spontaneous
  Country: US (occurrence: None)
  Receive Date: 20130422
  Receipt Date: 20130422
  Transmission Date: 20140414
  Serious: Yes (Other)
  Sender: FDA-Public Use
  Company Number: None

PATIENT
  Sex: Male
  Weight: 77.11 kg

DRUGS (1)
  1. TOPIRAMATE [Suspect]
     Indication: LENNOX-GASTAUT SYNDROME
     Dosage: GENERIC PRIOR TO 2001

REACTIONS (2)
  - Convulsion [None]
  - Product substitution issue [None]
